FAERS Safety Report 8728643 (Version 2)
Quarter: 2012Q4

REPORT INFORMATION
  Report Type: 
  Country: US (occurrence: US)
  Receive Date: 20120817
  Receipt Date: 20120828
  Transmission Date: 20130627
  Serious: Yes (Other)
  Sender: FDA-Public Use
  Company Number: US-MYLANLABS-2012S1016132

PATIENT
  Age: 17 Year
  Sex: Female

DRUGS (6)
  1. AMNESTEEM [Suspect]
     Indication: ACNE
     Route: 048
     Dates: start: 20120308, end: 20120721
  2. AMNESTEEM [Suspect]
     Indication: ACNE
     Route: 048
     Dates: start: 20120308, end: 20120721
  3. MYORISAN [Suspect]
     Indication: ACNE
     Route: 048
     Dates: start: 20120308, end: 20120721
  4. SERTRALINE [Concomitant]
     Indication: ANXIETY
     Dates: start: 20110908, end: 20120502
  5. SERTRALINE [Concomitant]
     Indication: PANIC ATTACK
     Dates: start: 20120503
  6. MICROGESTIN FE [Concomitant]
     Indication: CONTRACEPTION

REACTIONS (5)
  - Suicide attempt [Not Recovered/Not Resolved]
  - Suicidal ideation [Not Recovered/Not Resolved]
  - Depression [Not Recovered/Not Resolved]
  - Anxiety [Not Recovered/Not Resolved]
  - Panic attack [Not Recovered/Not Resolved]
